FAERS Safety Report 21846944 (Version 1)
Quarter: 2023Q1

REPORT INFORMATION
  Report Type: Spontaneous
  Country: US (occurrence: None)
  Receive Date: 20230110
  Receipt Date: 20230110
  Transmission Date: 20230418
  Serious: Yes (Other)
  Sender: FDA-Public Use
  Company Number: None

PATIENT
  Age: 56 Year
  Sex: Female
  Weight: 89.81 kg

DRUGS (1)
  1. HYDROXYZINE HYDROCHLORIDE [Suspect]
     Active Substance: HYDROXYZINE HYDROCHLORIDE
     Indication: Schizoaffective disorder
     Dosage: 1 CAP TAB PRN PO?
     Route: 048
     Dates: start: 20210428, end: 20221012

REACTIONS (3)
  - Swelling face [None]
  - Lip swelling [None]
  - Therapy cessation [None]

NARRATIVE: CASE EVENT DATE: 20221012
